FAERS Safety Report 24331639 (Version 3)
Quarter: 2025Q3

REPORT INFORMATION
  Report Type: Spontaneous
  Country: EU (occurrence: EU)
  Receive Date: 20240918
  Receipt Date: 20250809
  Transmission Date: 20251020
  Serious: Yes (Other)
  Sender: ALEXION PHARMACEUTICALS
  Company Number: None

PATIENT
  Age: 65 Year
  Sex: Male
  Weight: 98 kg

DRUGS (1)
  1. OMEPRAZOLE [Suspect]
     Active Substance: OMEPRAZOLE
     Indication: Gastrooesophageal reflux disease
     Dates: start: 20190601, end: 20191130

REACTIONS (1)
  - Internal haemorrhage [Unknown]
